FAERS Safety Report 24213292 (Version 1)
Quarter: 2024Q3

REPORT INFORMATION
  Report Type: Report from Study
  Country: US (occurrence: None)
  Receive Date: 20240815
  Receipt Date: 20240815
  Transmission Date: 20241017
  Serious: Yes (Other)
  Sender: ASTRAZENECA
  Company Number: 2023A129648

PATIENT
  Sex: Male

DRUGS (1)
  1. BRILINTA [Suspect]
     Active Substance: TICAGRELOR
     Indication: Stent placement
     Route: 048

REACTIONS (15)
  - Chronic kidney disease [Unknown]
  - Renal failure [Unknown]
  - Osteoporosis [Unknown]
  - Osteoarthritis [Unknown]
  - Suicidal ideation [Unknown]
  - Somnolence [Unknown]
  - Thyroid disorder [Unknown]
  - Vomiting [Unknown]
  - Haemorrhagic diathesis [Unknown]
  - Increased tendency to bruise [Unknown]
  - Pollakiuria [Unknown]
  - Cataract [Unknown]
  - Neuropathy peripheral [Unknown]
  - Glaucoma [Unknown]
  - Product dose omission issue [Unknown]
